FAERS Safety Report 7250680-0 (Version None)
Quarter: 2011Q1

REPORT INFORMATION
  Report Type: 
  Country: None (occurrence: None)
  Receive Date: 20110128
  Receipt Date: 20110118
  Transmission Date: 20110831
  Serious: Yes (Other)
  Sender: FDA-Public Use
  Company Number: PHEH2006US01252

PATIENT
  Sex: Male
  Weight: 84.807 kg

DRUGS (35)
  1. COUMADIN [Concomitant]
     Dosage: UNK, UNK
  2. HYDROCODONE [Concomitant]
  3. CEPHALEXIN [Concomitant]
  4. UROXATRAL [Concomitant]
     Dosage: UNK
  5. ACIPHEX [Concomitant]
     Dosage: 20 MG, QD
  6. LOVENOX [Concomitant]
     Dosage: UNK, UNK
  7. CELEBREX [Concomitant]
     Dosage: UNK, UNK
  8. VITAMIN B [Concomitant]
  9. TYLENOL-500 [Concomitant]
     Dosage: UNK, UNK
  10. PREDNISONE [Concomitant]
     Dosage: UNK, UNK
  11. EPOGEN [Concomitant]
     Dosage: UNK, UNK
     Dates: start: 19990101
  12. PENICILLIN VK [Concomitant]
  13. AREDIA [Suspect]
  14. MULTIVITAMIN ^LAPPE^ [Concomitant]
  15. ANTINEOPLASTIC AGENTS [Concomitant]
     Indication: MULTIPLE MYELOMA
     Dosage: UNK, UNK
     Dates: start: 20000101, end: 20000101
  16. TYLENOL W/ CODEINE NO. 3 [Concomitant]
  17. PROCHLORPERAZINE [Concomitant]
  18. ZOLOFT [Concomitant]
     Dosage: 50MG QHS
  19. IRON [Concomitant]
  20. IBUPROFEN [Concomitant]
  21. ZOLOFT [Concomitant]
     Dosage: 100 MG, QD
  22. CARAFATE [Concomitant]
     Dosage: 2 TSP, 3-4 TIMES DAILY
  23. COUMADIN [Concomitant]
  24. ASCORBIC ACID [Concomitant]
  25. CALCIUM [Concomitant]
  26. CIPROFLOXACIN [Concomitant]
  27. DEXAMETHASONE [Concomitant]
  28. PROCRIT                            /00909301/ [Concomitant]
  29. CIPRODEX [Concomitant]
  30. MULTIVITAMIN [Concomitant]
     Dosage: UNK
  31. ATIVAN [Concomitant]
     Dosage: UNK, UNK
  32. LEVAQUIN [Concomitant]
  33. ZOMETA [Suspect]
     Indication: METASTASES TO BONE
     Dosage: 4 MG, QMO
  34. ASPIRIN [Concomitant]
     Dosage: 81MG UNK
  35. CLINDAMYCIN [Concomitant]

REACTIONS (85)
  - PAIN [None]
  - INFECTION [None]
  - DEPRESSION [None]
  - EYE HAEMORRHAGE [None]
  - HIATUS HERNIA [None]
  - OROPHARYNGEAL PAIN [None]
  - DIVERTICULUM [None]
  - ABDOMINAL DISTENSION [None]
  - MUSCLE ATROPHY [None]
  - EXTRASKELETAL OSSIFICATION [None]
  - CEREBRAL ATROPHY [None]
  - MUSCULOSKELETAL PAIN [None]
  - CEREBROVASCULAR ACCIDENT [None]
  - MUCOSAL INFLAMMATION [None]
  - PLEURAL EFFUSION [None]
  - PNEUMONIA [None]
  - ORAL PAIN [None]
  - DYSPHAGIA [None]
  - STAPHYLOCOCCAL BACTERAEMIA [None]
  - GASTRITIS [None]
  - DYSPEPSIA [None]
  - ISCHAEMIA [None]
  - OSTEONECROSIS OF JAW [None]
  - INFLAMMATION [None]
  - FIBULA FRACTURE [None]
  - HERPES VIRUS INFECTION [None]
  - SPINAL OSTEOARTHRITIS [None]
  - PANCYTOPENIA [None]
  - LACTOSE INTOLERANCE [None]
  - OEDEMA [None]
  - METASTATIC NEOPLASM [None]
  - FRACTURE [None]
  - CATARACT [None]
  - PARAESTHESIA [None]
  - INTERVERTEBRAL DISC DISORDER [None]
  - GASTROOESOPHAGEAL REFLUX DISEASE [None]
  - NAUSEA [None]
  - IMPAIRED HEALING [None]
  - ORAL INFECTION [None]
  - OSTEITIS [None]
  - BONE LESION [None]
  - HEADACHE [None]
  - DIPLOPIA [None]
  - BLOOD CALCIUM DECREASED [None]
  - BLOOD GLUCOSE INCREASED [None]
  - COUGH [None]
  - ERECTILE DYSFUNCTION [None]
  - EJACULATION DISORDER [None]
  - BLADDER OBSTRUCTION [None]
  - BONE DISORDER [None]
  - ABSCESS ORAL [None]
  - OSTEOPOROSIS [None]
  - PLATELET COUNT DECREASED [None]
  - TOOTH LOSS [None]
  - ANXIETY [None]
  - BLOOD IMMUNOGLOBULIN A DECREASED [None]
  - FEBRILE NEUTROPENIA [None]
  - REFLUX OESOPHAGITIS [None]
  - BENIGN PROSTATIC HYPERPLASIA [None]
  - UMBILICAL HERNIA, OBSTRUCTIVE [None]
  - STRESS FRACTURE [None]
  - CEREBRAL INFARCTION [None]
  - PAIN IN JAW [None]
  - OSTEOPENIA [None]
  - MUSCLE SPASMS [None]
  - MENINGIOMA [None]
  - GASTRITIS EROSIVE [None]
  - OSTEOMYELITIS [None]
  - ORAL HERPES [None]
  - FLATULENCE [None]
  - ABDOMINAL DISCOMFORT [None]
  - ERUCTATION [None]
  - CONSTIPATION [None]
  - TENDON DISORDER [None]
  - EXCESSIVE GRANULATION TISSUE [None]
  - INSOMNIA [None]
  - SUBCUTANEOUS ABSCESS [None]
  - FATIGUE [None]
  - BLOOD IMMUNOGLOBULIN M DECREASED [None]
  - PLASMACYTOMA [None]
  - HIP FRACTURE [None]
  - ATELECTASIS [None]
  - PULMONARY CONGESTION [None]
  - EROSIVE OESOPHAGITIS [None]
  - JOINT EFFUSION [None]
